FAERS Safety Report 16719238 (Version 1)
Quarter: 2019Q3

REPORT INFORMATION
  Report Type: Spontaneous
  Country: NL (occurrence: NL)
  Receive Date: 20190820
  Receipt Date: 20190820
  Transmission Date: 20191005
  Serious: Yes (Death)
  Sender: FDA-Public Use
  Company Number: NL-ACTELION-A-CH2019-194387

PATIENT

DRUGS (1)
  1. UPTRAVI [Suspect]
     Active Substance: SELEXIPAG
     Indication: PULMONARY ARTERIAL HYPERTENSION
     Route: 048

REACTIONS (5)
  - Condition aggravated [Unknown]
  - Right ventricular failure [Fatal]
  - Adverse event [Unknown]
  - Gastrointestinal haemorrhage [Fatal]
  - Pulmonary arterial hypertension [Unknown]
